FAERS Safety Report 13356292 (Version 1)
Quarter: 2017Q1

REPORT INFORMATION
  Report Type: Report from Study
  Country: US (occurrence: US)
  Receive Date: 20170321
  Receipt Date: 20170321
  Transmission Date: 20170429
  Serious: Yes (Other)
  Sender: FDA-Public Use
  Company Number: PHEH2017US008194

PATIENT
  Sex: Female

DRUGS (4)
  1. GILENYA [Suspect]
     Active Substance: FINGOLIMOD HYDROCHLORIDE
     Indication: MULTIPLE SCLEROSIS
     Dosage: 0.5 MG, QD
     Route: 048
  2. CLONAZEPAM. [Suspect]
     Active Substance: CLONAZEPAM
     Dosage: 2 MG, UNK
     Route: 065
  3. ESTRADIOL. [Concomitant]
     Active Substance: ESTRADIOL
     Indication: MENOPAUSE
     Dosage: UNK
     Route: 065
     Dates: end: 20170316
  4. CLONAZEPAM. [Suspect]
     Active Substance: CLONAZEPAM
     Indication: TREMOR
     Dosage: 6 MG, UNK
     Route: 065

REACTIONS (4)
  - Feeling abnormal [Unknown]
  - Withdrawal syndrome [Unknown]
  - Malaise [Unknown]
  - Crying [Unknown]
